FAERS Safety Report 6757932-9 (Version None)
Quarter: 2010Q2

REPORT INFORMATION
  Report Type: 
  Country: None (occurrence: None)
  Receive Date: 20100602
  Receipt Date: 20100518
  Transmission Date: 20101027
  Serious: Yes (Death)
  Sender: FDA-Public Use
  Company Number: 2010AC000448

PATIENT
  Sex: Female

DRUGS (1)
  1. DIGOXIN [Suspect]

REACTIONS (5)
  - ANXIETY [None]
  - DRUG LEVEL FLUCTUATING [None]
  - ECONOMIC PROBLEM [None]
  - INCORRECT DOSE ADMINISTERED [None]
  - PAIN [None]
